FAERS Safety Report 8136348-7 (Version None)
Quarter: 2012Q1

REPORT INFORMATION
  Report Type: 
  Country: None (occurrence: None)
  Receive Date: 20120214
  Receipt Date: 20120203
  Transmission Date: 20120608
  Serious: Yes (Hospitalization)
  Sender: FDA-Public Use
  Company Number: FR-NAPPMUNDI-GBR-2011-0008945

PATIENT
  Sex: Female

DRUGS (13)
  1. AUGMENTIN                          /00756801/ [Suspect]
     Dosage: 500/62.5 MG, UNK
     Route: 065
     Dates: start: 20110825, end: 20110825
  2. TEMAZEPAM [Suspect]
     Dosage: UNK
     Route: 048
     Dates: start: 20110820, end: 20110829
  3. ACUPAN [Suspect]
     Dosage: UNK
     Route: 065
     Dates: start: 20110819, end: 20110830
  4. ACETAMINOPHEN [Concomitant]
     Dosage: UNK
     Dates: start: 20110828
  5. KEPPRA [Concomitant]
     Dosage: UNK
     Dates: start: 20110818
  6. PRIMPERAN TAB [Concomitant]
     Dosage: UNK
     Dates: start: 20110821, end: 20110828
  7. PHENYTOIN SODIUM [Concomitant]
  8. PIPERACILLIN/TAZOBACTAM [Suspect]
     Dosage: UNK
     Route: 065
     Dates: start: 20110825, end: 20110829
  9. POTASSIUM CHLORIDE [Concomitant]
     Dosage: UNK
     Dates: start: 20110817, end: 20110827
  10. LOXEN [Concomitant]
     Dosage: UNK
     Dates: start: 20110817
  11. LOVENOX [Concomitant]
     Dosage: UNK
  12. ROVAMYCIN [Suspect]
     Dosage: UNK
     Route: 065
     Dates: start: 20110825, end: 20110826
  13. MORPHINE SULFATE [Suspect]
     Indication: PAIN
     Dosage: UNK UNK, DAILY
     Route: 048
     Dates: start: 20110820, end: 20110828

REACTIONS (2)
  - PYREXIA [None]
  - LUNG DISORDER [None]
